FAERS Safety Report 8781242 (Version 4)
Quarter: 2013Q4

REPORT INFORMATION
  Report Type: Report from Study
  Country: BE (occurrence: BE)
  Receive Date: 20120913
  Receipt Date: 20131220
  Transmission Date: 20140711
  Serious: Yes (Hospitalization)
  Sender: FDA-Public Use
  Company Number: BE-ROCHE-1113334

PATIENT
  Age: 82 Year
  Sex: Female
  Weight: 74 kg

DRUGS (9)
  1. BEVACIZUMAB [Suspect]
     Indication: COLORECTAL CANCER
     Route: 042
     Dates: start: 20120716, end: 20120806
  2. IRINOTECAN [Suspect]
     Indication: COLORECTAL CANCER
     Route: 042
     Dates: start: 20120716, end: 20120806
  3. CALCIUM LEVOFOLINATE [Suspect]
     Indication: COLORECTAL CANCER
     Route: 042
     Dates: start: 20120716
  4. 5-FU [Suspect]
     Indication: COLORECTAL CANCER
     Route: 042
     Dates: start: 20120716
  5. NOVOTHYRAL [Concomitant]
     Route: 048
  6. NOVONORM [Concomitant]
     Indication: DIABETES MELLITUS
     Route: 048
  7. HYDERGINE [Concomitant]
     Route: 048
  8. EMCONCOR [Concomitant]
     Indication: HYPERTENSION
     Route: 048
  9. COAPROVEL [Concomitant]
     Indication: HYPERTENSION
     Route: 048

REACTIONS (4)
  - Pulmonary embolism [Not Recovered/Not Resolved]
  - Dyspnoea [Not Recovered/Not Resolved]
  - Asthenia [Not Recovered/Not Resolved]
  - Tachycardia [Recovered/Resolved]
